FAERS Safety Report 5349430-4 (Version None)
Quarter: 2007Q2

REPORT INFORMATION
  Report Type: 
  Country: None (occurrence: None)
  Receive Date: 20070607
  Receipt Date: 20070530
  Transmission Date: 20071010
  Serious: Yes (Other)
  Sender: FDA-Public Use
  Company Number: US-ROCHE-490437

PATIENT
  Age: 47 Year
  Sex: Female
  Weight: 74.8 kg

DRUGS (6)
  1. PEGASYS [Suspect]
     Indication: HEPATITIS C
     Dosage: STRENGTH:  180 MCG/0.5CC
     Route: 058
     Dates: start: 20061031
  2. COPEGUS [Suspect]
     Indication: HEPATITIS C
     Dosage: SHE TOOK (6) 200MG TABLETS PER DAY.
     Route: 048
     Dates: start: 20061031
  3. NEUPOGEN [Concomitant]
     Dosage: SHE STARTED NEUPOGEN AT THE END OF NOVEMBER 2006.
     Dates: start: 20061125
  4. METHADONE HCL [Concomitant]
     Indication: PAIN
  5. TRANXENE [Concomitant]
     Indication: ANXIETY
  6. GLYCOLAX [Concomitant]
     Indication: CONSTIPATION

REACTIONS (13)
  - ALOPECIA [None]
  - ANXIETY [None]
  - CHILLS [None]
  - CONSTIPATION [None]
  - CRYING [None]
  - DEHYDRATION [None]
  - DEPRESSION [None]
  - EYE IRRITATION [None]
  - INFLUENZA LIKE ILLNESS [None]
  - INJECTION SITE ERYTHEMA [None]
  - IRRITABILITY [None]
  - MENINGIOMA [None]
  - WHITE BLOOD CELL COUNT DECREASED [None]
